FAERS Safety Report 21165240 (Version 6)
Quarter: 2022Q4

REPORT INFORMATION
  Report Type: Report from Study
  Country: CA (occurrence: CA)
  Receive Date: 20220803
  Receipt Date: 20221206
  Transmission Date: 20230112
  Serious: Yes (Other)
  Sender: FDA-Public Use
  Company Number: CA-BRISTOL-MYERS SQUIBB COMPANY-2022-042379

PATIENT
  Age: 80 Year
  Sex: Male
  Weight: 53 kg

DRUGS (6)
  1. OPDIVO [Suspect]
     Active Substance: NIVOLUMAB
     Indication: Gastric cancer
     Route: 042
     Dates: start: 20220426
  2. OPDIVO [Suspect]
     Active Substance: NIVOLUMAB
     Route: 042
     Dates: start: 20220426
  3. OPDIVO [Suspect]
     Active Substance: NIVOLUMAB
     Route: 041
     Dates: start: 20220426
  4. OPDIVO [Suspect]
     Active Substance: NIVOLUMAB
     Route: 041
  5. CARVEDILOL [Concomitant]
     Active Substance: CARVEDILOL
     Indication: Product used for unknown indication
     Route: 065
  6. MELATONIN [Concomitant]
     Active Substance: MELATONIN
     Indication: Product used for unknown indication
     Route: 065

REACTIONS (20)
  - Anaphylactic reaction [Unknown]
  - Cytokine release syndrome [Unknown]
  - Fatigue [Unknown]
  - Nausea [Unknown]
  - Weight decreased [Unknown]
  - Condition aggravated [Unknown]
  - Pain [Unknown]
  - Abdominal pain upper [Unknown]
  - Depression [Unknown]
  - Gastrooesophageal reflux disease [Unknown]
  - Dyspepsia [Unknown]
  - Dyspnoea [Unknown]
  - Weight [Unknown]
  - Intentional product use issue [Unknown]
  - Constipation [Recovered/Resolved]
  - Cognitive disorder [Unknown]
  - Anaemia [Unknown]
  - Somnolence [Unknown]
  - Depressed mood [Unknown]
  - Decreased appetite [Recovered/Resolved]

NARRATIVE: CASE EVENT DATE: 20220525
